FAERS Safety Report 19924178 (Version 5)
Quarter: 2022Q1

REPORT INFORMATION
  Report Type: Spontaneous
  Country: AR (occurrence: AR)
  Receive Date: 20211005
  Receipt Date: 20220105
  Transmission Date: 20220423
  Serious: Yes (Other)
  Sender: FDA-Public Use
  Company Number: NVSC2021AR223298

PATIENT
  Sex: Male
  Weight: 74 kg

DRUGS (4)
  1. ENTRESTO [Suspect]
     Active Substance: SACUBITRIL\VALSARTAN
     Indication: Cardiac failure
     Dosage: 1 DOSAGE FORM, QD (DAILY AT NIGHT)
     Route: 065
  2. ENTRESTO [Suspect]
     Active Substance: SACUBITRIL\VALSARTAN
     Dosage: 1 DOSAGE FORM, BID (100MG)
     Route: 065
     Dates: start: 201910
  3. ENTRESTO [Suspect]
     Active Substance: SACUBITRIL\VALSARTAN
     Dosage: UNK,100MG ON THE MORNING AND 200MG AT NIGHT
     Route: 065
  4. CORTICOSTEROID NOS [Suspect]
     Active Substance: CORTICOSTEROID NOS
     Indication: Chronic obstructive pulmonary disease
     Dosage: UNK
     Route: 065

REACTIONS (14)
  - Arrhythmia [Recovered/Resolved]
  - Angina pectoris [Recovered/Resolved]
  - Ejection fraction decreased [Unknown]
  - Myocardial infarction [Unknown]
  - Left ventricular dysfunction [Unknown]
  - Cardiac aneurysm [Recovering/Resolving]
  - Tachycardia [Recovering/Resolving]
  - Stress [Unknown]
  - Vocal cord disorder [Recovering/Resolving]
  - Dysphonia [Not Recovered/Not Resolved]
  - Candida infection [Unknown]
  - Reflux gastritis [Unknown]
  - Hiatus hernia [Unknown]
  - Inappropriate schedule of product administration [Unknown]

NARRATIVE: CASE EVENT DATE: 20200101
